FAERS Safety Report 18309327 (Version 3)
Quarter: 2020Q4

REPORT INFORMATION
  Report Type: Spontaneous
  Country: DE (occurrence: DE)
  Receive Date: 20200925
  Receipt Date: 20201214
  Transmission Date: 20210113
  Serious: Yes (Hospitalization, Other)
  Sender: FDA-Public Use
  Company Number: DE-AUROBINDO-AUR-APL-2020-049357

PATIENT
  Sex: Female
  Weight: 102 kg

DRUGS (4)
  1. HUMALOG [Concomitant]
     Active Substance: INSULIN LISPRO
     Indication: DIABETES MELLITUS
     Dosage: UNK
     Route: 058
     Dates: start: 202008
  2. HUMULIN NOS [Concomitant]
     Active Substance: INSULIN HUMAN
     Indication: DIABETES MELLITUS
     Dosage: UNK
     Route: 058
     Dates: start: 202008
  3. RAMIPRIL TABLET [Suspect]
     Active Substance: RAMIPRIL
     Indication: HYPERTENSION
     Dosage: 2.5 MILLIGRAM, TWO TIMES A DAY
     Route: 048
     Dates: start: 202002
  4. OPDIVO [Suspect]
     Active Substance: NIVOLUMAB
     Indication: MALIGNANT MELANOMA STAGE IV
     Dosage: 480 MILLIGRAM, 4 WEEK
     Route: 042
     Dates: start: 20191219, end: 20200730

REACTIONS (4)
  - Type 1 diabetes mellitus [Recovered/Resolved]
  - Pregnancy with contraceptive device [Unknown]
  - Maternal exposure during pregnancy [Unknown]
  - Gestational hypertension [Not Recovered/Not Resolved]

NARRATIVE: CASE EVENT DATE: 202002
